FAERS Safety Report 4295661-4 (Version None)
Quarter: 2004Q1

REPORT INFORMATION
  Report Type: 
  Country: None (occurrence: None)
  Receive Date: 20040216
  Receipt Date: 20030807
  Transmission Date: 20041129
  Serious: No
  Sender: FDA-Public Use
  Company Number: US-GLAXOSMITHKLINE-A0419972A

PATIENT
  Age: 19 Year
  Sex: Female

DRUGS (1)
  1. PAXIL [Suspect]
     Indication: PANIC ATTACK
     Route: 048
     Dates: start: 20021101

REACTIONS (3)
  - ANOREXIA [None]
  - INFLUENZA LIKE ILLNESS [None]
  - VOMITING [None]
